FAERS Safety Report 9012685 (Version 2)
Quarter: 2013Q4

REPORT INFORMATION
  Report Type: Spontaneous
  Country: US (occurrence: US)
  Receive Date: 20130114
  Receipt Date: 20131216
  Transmission Date: 20140711
  Serious: Yes (Hospitalization, Other)
  Sender: FDA-Public Use
  Company Number: US-009507513-1301USA005118

PATIENT
  Sex: Female
  Weight: 83.9 kg

DRUGS (2)
  1. NUVARING [Suspect]
     Indication: MENSTRUATION IRREGULAR
     Dosage: UNK
     Route: 067
     Dates: start: 201011, end: 201108
  2. VITAMINS (UNSPECIFIED) [Concomitant]
     Indication: VITAMIN SUPPLEMENTATION

REACTIONS (9)
  - Pulmonary embolism [Unknown]
  - Coagulopathy [Unknown]
  - Deep vein thrombosis [Unknown]
  - Off label use [Unknown]
  - Dyspnoea [Unknown]
  - Wheezing [Unknown]
  - Sinusitis [Unknown]
  - Rhinitis allergic [Unknown]
  - Back pain [Unknown]
